FAERS Safety Report 23269731 (Version 1)
Quarter: 2023Q4

REPORT INFORMATION
  Report Type: Spontaneous
  Country: US (occurrence: US)
  Receive Date: 20231207
  Receipt Date: 20231207
  Transmission Date: 20240110
  Serious: Yes (Life-Threatening, Hospitalization, Other)
  Sender: FDA-Public Use
  Company Number: US-MLMSERVICE-20231122-4673906-1

PATIENT
  Age: 40 Year
  Sex: Female

DRUGS (2)
  1. CLOZAPINE [Suspect]
     Active Substance: CLOZAPINE
     Indication: Schizoaffective disorder
     Dosage: 500 MILLIGRAM, ONCE A DAY(FOR AT LEAST 10 YEARS)
     Route: 065
     Dates: start: 2011, end: 2021
  2. CLOZAPINE [Suspect]
     Active Substance: CLOZAPINE
     Dosage: 400 MILLIGRAM, ONCE A DAY (RESTARTED WITH REDUCED DAILY DOSE)
     Route: 065
     Dates: start: 202107

REACTIONS (4)
  - Shock [Unknown]
  - Cardiac arrest [Unknown]
  - Drug dose titration not performed [Unknown]
  - Brain hypoxia [Unknown]
